FAERS Safety Report 4744665-3 (Version None)
Quarter: 2005Q3

REPORT INFORMATION
  Report Type: 
  Country: None (occurrence: None)
  Receive Date: 20050815
  Receipt Date: 20050805
  Transmission Date: 20060218
  Serious: Yes (Death, Life-Threatening, Other)
  Sender: FDA-Public Use
  Company Number: GB-JNJFOC-20050801773

PATIENT
  Sex: Male
  Weight: 67 kg

DRUGS (5)
  1. REMICADE [Suspect]
     Indication: RHEUMATOID ARTHRITIS
     Route: 042
  2. PREDNISOLONE [Concomitant]
     Route: 065
  3. FOLIC ACID [Concomitant]
     Route: 065
  4. CALCIUM GLUCONATE [Concomitant]
     Route: 065
  5. TRAMADOL HCL [Concomitant]
     Route: 065

REACTIONS (1)
  - CARDIAC FAILURE ACUTE [None]
